FAERS Safety Report 8648498 (Version 4)
Quarter: 2013Q3

REPORT INFORMATION
  Report Type: Spontaneous
  Country: DK (occurrence: None)
  Receive Date: 20120622
  Receipt Date: 20130819
  Transmission Date: 20140515
  Serious: Yes (Disabling)
  Sender: FDA-Public Use
  Company Number: 1316780

PATIENT
  Age: 36 Year
  Sex: Female

DRUGS (3)
  1. EPIRUBICIN HYDROCHLORIDE [Suspect]
     Indication: BREAST CANCER
     Dosage: (NOT OTHERWISE SPECIFIED)
     Route: 042
     Dates: start: 20081006, end: 20081117
  2. CYCLOPHOSPHAMIDE [Concomitant]
  3. TAXOTERE [Concomitant]

REACTIONS (9)
  - Heart transplant [None]
  - Dyspnoea [None]
  - Pulmonary function test decreased [None]
  - Cardiac failure [None]
  - Brain neoplasm benign [None]
  - Amnesia [None]
  - Mental disorder [None]
  - Pulmonary function test decreased [None]
  - Amnesia [None]
